FAERS Safety Report 9006170 (Version 1)
Quarter: 2013Q1

REPORT INFORMATION
  Report Type: Spontaneous
  Country: US (occurrence: US)
  Receive Date: 20130110
  Receipt Date: 20130110
  Transmission Date: 20140127
  Serious: Yes (Life-Threatening)
  Sender: FDA-Public Use
  Company Number: US-009507513-0907USA03592

PATIENT
  Age: 11 Year
  Sex: Female
  Weight: 68.39 kg

DRUGS (1)
  1. SINGULAIR [Suspect]
     Indication: GASTRIC DISORDER
     Route: 048
     Dates: start: 20070301, end: 20070730

REACTIONS (1)
  - Suicidal ideation [Unknown]
